FAERS Safety Report 10721275 (Version 3)
Quarter: 2015Q1

REPORT INFORMATION
  Report Type: Report from Study
  Country: NL (occurrence: NL)
  Receive Date: 20150119
  Receipt Date: 20150205
  Transmission Date: 20150721
  Serious: Yes (Hospitalization)
  Sender: FDA-Public Use
  Company Number: NL-ABBVIE-14P-114-1317795-00

PATIENT
  Age: 66 Year
  Sex: Male
  Weight: 94 kg

DRUGS (4)
  1. DUODOPA [Suspect]
     Active Substance: CARBIDOPA\LEVODOPA
     Indication: PARKINSON^S DISEASE
     Dosage: 20/5MG/ML. INTESTINAL
     Route: 050
     Dates: start: 201405
  2. REQUIP [Suspect]
     Active Substance: ROPINIROLE HYDROCHLORIDE
     Indication: PRODUCT USED FOR UNKNOWN INDICATION
     Route: 065
     Dates: end: 20140724
  3. COLDEX [Suspect]
     Active Substance: ACETAMINOPHEN
     Indication: PRODUCT USED FOR UNKNOWN INDICATION
     Route: 065
  4. DUODOPA [Suspect]
     Active Substance: CARBIDOPA\LEVODOPA
     Dosage: 11,5 CD, 5,7 ED, 5,5 DAYTIME 4 NIGHT TIME ND 4,25
     Route: 050
     Dates: start: 20141112

REACTIONS (8)
  - Panic reaction [Recovered/Resolved]
  - Arthralgia [Recovered/Resolved]
  - Unevaluable event [Recovered/Resolved]
  - Constipation [Unknown]
  - Skin tightness [Not Recovered/Not Resolved]
  - Drug effect incomplete [Unknown]
  - Malaise [Recovered/Resolved]
  - Hospitalisation [Unknown]

NARRATIVE: CASE EVENT DATE: 201406
